FAERS Safety Report 10815267 (Version 2)
Quarter: 2015Q2

REPORT INFORMATION
  Report Type: Spontaneous
  Country: JP (occurrence: JP)
  Receive Date: 20150218
  Receipt Date: 20150406
  Transmission Date: 20150821
  Serious: Yes (Other)
  Sender: FDA-Public Use
  Company Number: PHHY2015JP018678

PATIENT
  Age: 74 Year
  Sex: Female

DRUGS (1)
  1. ZOMETA [Suspect]
     Active Substance: ZOLEDRONIC ACID
     Indication: METASTASES TO BONE
     Route: 041

REACTIONS (7)
  - Pain [Unknown]
  - Exposed bone in jaw [Unknown]
  - Osteomyelitis [Unknown]
  - Erythema [Unknown]
  - Gingivitis [Unknown]
  - Bone swelling [Unknown]
  - Tenderness [Unknown]
